FAERS Safety Report 9606472 (Version 2)
Quarter: 2014Q1

REPORT INFORMATION
  Report Type: Spontaneous
  Country: US (occurrence: US)
  Receive Date: 20131008
  Receipt Date: 20140205
  Transmission Date: 20141002
  Serious: Yes (Other)
  Sender: FDA-Public Use
  Company Number: US-AMGEN-USASP2013055584

PATIENT
  Age: 69 Year
  Sex: Female

DRUGS (11)
  1. PROLIA [Suspect]
     Indication: OSTEOPOROSIS POSTMENOPAUSAL
     Dosage: UNK
     Route: 065
  2. SYNTHROID [Concomitant]
  3. GABAPENTIN [Concomitant]
  4. CARDIZEM                           /00489701/ [Concomitant]
  5. TYLENOL                            /00020001/ [Concomitant]
  6. OMEPRAZOLE [Concomitant]
  7. DICYCLOMINE                        /00068601/ [Concomitant]
  8. POTASSIUM [Concomitant]
  9. LASIX                              /00032601/ [Concomitant]
  10. CALCIUM WITH VITAMIN D             /00944201/ [Concomitant]
  11. MULTIVITAMIN                       /00097801/ [Concomitant]

REACTIONS (33)
  - Chest discomfort [Unknown]
  - Spinal deformity [Unknown]
  - Weight increased [Unknown]
  - Pain [Not Recovered/Not Resolved]
  - Visceral pain [Not Recovered/Not Resolved]
  - Pain of skin [Recovering/Resolving]
  - Eye pain [Recovering/Resolving]
  - Gingival pain [Recovering/Resolving]
  - Neuropathy peripheral [Unknown]
  - Fat tissue increased [Unknown]
  - Skin reaction [Unknown]
  - Feeling abnormal [Unknown]
  - Malaise [Unknown]
  - Headache [Unknown]
  - Generalised oedema [Unknown]
  - Dysuria [Unknown]
  - Gait disturbance [Unknown]
  - Mobility decreased [Unknown]
  - Stress [Unknown]
  - Blood cholesterol increased [Unknown]
  - Diarrhoea [Recovered/Resolved]
  - Nausea [Recovered/Resolved]
  - Fatigue [Unknown]
  - Panic attack [Unknown]
  - Vitamin D decreased [Unknown]
  - Mental impairment [Unknown]
  - Hyperphagia [Unknown]
  - Spinal pain [Not Recovered/Not Resolved]
  - Insomnia [Unknown]
  - Abdominal pain upper [Not Recovered/Not Resolved]
  - Bone pain [Unknown]
  - Myalgia [Unknown]
  - Arthralgia [Not Recovered/Not Resolved]
